FAERS Safety Report 22392707 (Version 1)
Quarter: 2023Q2

REPORT INFORMATION
  Report Type: Spontaneous
  Country: US (occurrence: None)
  Receive Date: 20230531
  Receipt Date: 20230531
  Transmission Date: 20230722
  Serious: Yes (Hospitalization)
  Sender: FDA-Public Use
  Company Number: None

PATIENT
  Sex: Male
  Weight: 95.3 kg

DRUGS (1)
  1. BELATACEPT [Suspect]
     Active Substance: BELATACEPT
     Indication: Renal transplant
     Dosage: OTHER FREQUENCY : EVERY 28 DAYS;?
     Route: 042
     Dates: start: 20230325

REACTIONS (9)
  - Abscess [None]
  - Haematuria [None]
  - Perinephric collection [None]
  - Renal vein compression [None]
  - Hydronephrosis [None]
  - Ureteral disorder [None]
  - Vascular compression [None]
  - Culture urine positive [None]
  - Candida infection [None]
